FAERS Safety Report 4693169-5 (Version None)
Quarter: 2005Q2

REPORT INFORMATION
  Report Type: 
  Country: None (occurrence: None)
  Receive Date: 20050617
  Receipt Date: 20050315
  Transmission Date: 20051028
  Serious: Yes (Hospitalization)
  Sender: FDA-Public Use
  Company Number: FR-JNJFOC-20050303718

PATIENT
  Age: 79 Year
  Sex: Female

DRUGS (10)
  1. RISPERDAL [Suspect]
     Indication: DRUG USE FOR UNKNOWN INDICATION
     Route: 049
     Dates: end: 20040818
  2. TOPALGIC [Suspect]
     Indication: DRUG USE FOR UNKNOWN INDICATION
     Route: 049
  3. IMOVANE [Suspect]
     Indication: DRUG USE FOR UNKNOWN INDICATION
     Route: 049
  4. FLIXOTIDE [Concomitant]
     Dosage: 3 PUFFS PER DAY
  5. APROVEL [Concomitant]
  6. CORTANCYL [Concomitant]
  7. ACTONEL [Concomitant]
  8. OMEPRAZOLE [Concomitant]
  9. DIGOXIN [Concomitant]
  10. CALTRATE [Concomitant]

REACTIONS (3)
  - HYPOTENSION [None]
  - SOMNOLENCE [None]
  - UNRESPONSIVE TO PAIN STIMULI [None]
